FAERS Safety Report 21861662 (Version 4)
Quarter: 2023Q1

REPORT INFORMATION
  Report Type: Other
  Country: GB (occurrence: None)
  Receive Date: 20230113
  Receipt Date: 20230306
  Transmission Date: 20230417
  Serious: Yes (Hospitalization)
  Sender: FDA-Public Use
  Company Number: GB-ROCHE-3261965

PATIENT
  Age: 57 Year
  Sex: Male

DRUGS (12)
  1. OCRELIZUMAB [Suspect]
     Active Substance: OCRELIZUMAB
     Indication: Primary progressive multiple sclerosis
     Dosage: DOSE LAST STUDY DRUG ADMIN PRIOR AE/SAE IS 600 MG?START DATE OF MOST RECENT DOSE OF STUDY DRUG PRIOR
     Route: 042
     Dates: start: 20200218
  2. OCRELIZUMAB [Suspect]
     Active Substance: OCRELIZUMAB
     Route: 042
     Dates: start: 20210617, end: 20210617
  3. OCRELIZUMAB [Suspect]
     Active Substance: OCRELIZUMAB
     Route: 042
     Dates: start: 20220621, end: 20220621
  4. OCRELIZUMAB [Suspect]
     Active Substance: OCRELIZUMAB
     Route: 042
     Dates: start: 20200824, end: 20200824
  5. GABAPENTIN [Concomitant]
     Active Substance: GABAPENTIN
     Dosage: YES
     Route: 048
  6. GABAPENTIN [Concomitant]
     Active Substance: GABAPENTIN
     Route: 048
  7. ASPIRIN [Concomitant]
     Active Substance: ASPIRIN
     Indication: Cyanosis
     Dosage: YES
     Route: 048
     Dates: start: 2021
  8. GINKGO [Concomitant]
     Active Substance: GINKGO
     Indication: Cyanosis
     Dosage: YES
  9. PRIMROSE OIL [Concomitant]
     Indication: Cyanosis
     Dosage: YES
     Dates: start: 2021
  10. SOLIFENACIN [Concomitant]
     Active Substance: SOLIFENACIN
     Dosage: YES
     Route: 048
  11. ACETAMINOPHEN [Concomitant]
     Active Substance: ACETAMINOPHEN
     Dosage: YES
     Route: 048
  12. AMITRIPTYLINE [Concomitant]
     Active Substance: AMITRIPTYLINE
     Dosage: YES
     Route: 048

REACTIONS (3)
  - Diarrhoea [Recovered/Resolved]
  - COVID-19 [Recovered/Resolved]
  - Lower respiratory tract infection [Recovered/Resolved]

NARRATIVE: CASE EVENT DATE: 20221026
